FAERS Safety Report 17682844 (Version 1)
Quarter: 2020Q2

REPORT INFORMATION
  Report Type: Spontaneous
  Country: US (occurrence: US)
  Receive Date: 20200420
  Receipt Date: 20200420
  Transmission Date: 20200714
  Serious: No
  Sender: FDA-Public Use
  Company Number: US-AMGEN-USASP2020061282

PATIENT
  Age: 54 Year
  Sex: Female

DRUGS (3)
  1. HUMIRA [Suspect]
     Active Substance: ADALIMUMAB
     Indication: PSORIASIS
     Dosage: 40 MILLIGRAM
     Route: 058
     Dates: start: 20200211
  2. ENBREL [Suspect]
     Active Substance: ETANERCEPT
     Indication: PRODUCT USED FOR UNKNOWN INDICATION
     Dosage: UNK
     Route: 065
     Dates: start: 201910
  3. HUMIRA [Suspect]
     Active Substance: ADALIMUMAB
     Indication: PSORIATIC ARTHROPATHY

REACTIONS (5)
  - Joint swelling [Not Recovered/Not Resolved]
  - Gait disturbance [Unknown]
  - Weight increased [Unknown]
  - Dyspnoea exertional [Not Recovered/Not Resolved]
  - Paranasal sinus discomfort [Unknown]

NARRATIVE: CASE EVENT DATE: 2020
